FAERS Safety Report 15058732 (Version 13)
Quarter: 2019Q1

REPORT INFORMATION
  Report Type: Spontaneous
  Country: ES (occurrence: ES)
  Receive Date: 20180625
  Receipt Date: 20190214
  Transmission Date: 20190417
  Serious: Yes (Death, Hospitalization, Other)
  Sender: FDA-Public Use
  Company Number: ES-MYLANLABS-2018M1046084

PATIENT
  Age: 62 Year
  Sex: Male

DRUGS (42)
  1. VALPROIC ACID. [Interacting]
     Active Substance: VALPROIC ACID
     Dosage: 500 MG, TID (1-1-1-0)CHRONIC
     Route: 065
  2. LEVOTHYROXINE. [Suspect]
     Active Substance: LEVOTHYROXINE
     Dosage: 150 G, QD (100-200 MG)
     Route: 065
  3. CLONAZEPAM. [Interacting]
     Active Substance: CLONAZEPAM
     Dosage: 0.5 MG, QID (1-1-1-1 CRONICA) (2 MG, QD)
     Route: 065
  4. TIOTROPIUM [Suspect]
     Active Substance: TIOTROPIUM
     Dosage: 25 ?G, QD 1X1
  5. VALPROIC ACID. [Suspect]
     Active Substance: VALPROIC ACID
     Indication: EPILEPSY
     Dosage: 500 MG, TID
  6. LORATADINE. [Interacting]
     Active Substance: LORATADINE
     Dosage: 10 MG, QD, (1-0-0-0) CHRONIC
     Route: 048
  7. LEVOTHYROXINE. [Suspect]
     Active Substance: LEVOTHYROXINE
     Indication: HYPOTHYROIDISM
     Dosage: 450 ?G, QD, PER DAY
  8. CLONAZEPAM. [Interacting]
     Active Substance: CLONAZEPAM
     Indication: EPILEPSY
     Dosage: 0.5 MG, Q6H
  9. SALMETEROL/FLUTICASONE CASCAN [Interacting]
     Active Substance: FLUTICASONE PROPIONATE\SALMETEROL XINAFOATE
     Dosage: 2 INH X 2 TIMES A DAY (1-0-1-0)
     Route: 055
  10. TIOTROPIUM [Suspect]
     Active Substance: TIOTROPIUM
     Indication: CHRONIC OBSTRUCTIVE PULMONARY DISEASE
     Dosage: 2.5 ?G/PULSE
  11. QUETIAPINE. [Interacting]
     Active Substance: QUETIAPINE
     Indication: SCHIZOPHRENIA
     Dosage: 1200 MG, QD
     Route: 065
  12. METFORMIN [Concomitant]
     Active Substance: METFORMIN HYDROCHLORIDE
     Dosage: 3400 MG, QD (3 G/DAY)
  13. METFORMIN [Concomitant]
     Active Substance: METFORMIN HYDROCHLORIDE
     Dosage: 1700 MG, BID
  14. METFORMIN [Concomitant]
     Active Substance: METFORMIN HYDROCHLORIDE
     Dosage: 850 MG, BID (0-1-1-0)
     Route: 065
  15. QUETIAPINE. [Interacting]
     Active Substance: QUETIAPINE
     Indication: MAJOR DEPRESSION
     Dosage: 3600 MG, QD (400 TO 800 MG/DAY)
  16. METFORMIN [Interacting]
     Active Substance: METFORMIN HYDROCHLORIDE
     Indication: TYPE 2 DIABETES MELLITUS
     Dosage: 3400 MG, QD, PER DAY
     Route: 048
  17. HALOPERIDOL. [Interacting]
     Active Substance: HALOPERIDOL
     Dosage: UNK
  18. LEVOTHYROXINE. [Concomitant]
     Active Substance: LEVOTHYROXINE
     Dosage: 3 DF, QD
  19. QUETIAPINE. [Interacting]
     Active Substance: QUETIAPINE
     Dosage: 400 MG, UNK
  20. LORATADINE. [Interacting]
     Active Substance: LORATADINE
     Indication: RHINITIS
     Dosage: 10 MG, TOTAL
  21. HALOPERIDOL. [Interacting]
     Active Substance: HALOPERIDOL
     Indication: PSYCHOTIC DISORDER
     Dosage: 15 MG, 8 TIMES IN DAY
  22. HALOPERIDOL. [Interacting]
     Active Substance: HALOPERIDOL
     Dosage: 5 MG, Q8H (1-1-1-0)
     Route: 065
  23. LEVOTHYROXINE. [Suspect]
     Active Substance: LEVOTHYROXINE
     Dosage: 150 ?G, DAILY, (3-0-0-0) CHRONIC
     Route: 065
  24. SALMETEROL/FLUTICASONE CASCAN [Interacting]
     Active Substance: FLUTICASONE PROPIONATE\SALMETEROL XINAFOATE
     Dosage: 1 DOSAGE FORMS DAILY; INTERVAL 1-0-1-0-2 INHALACIONES
     Route: 048
  25. LEVOTHYROXINE. [Concomitant]
     Active Substance: LEVOTHYROXINE
     Indication: HYPOTHYROIDISM
     Dosage: 3-0-0-0
  26. SALMETEROL/FLUTICASONE CASCAN [Concomitant]
     Active Substance: FLUTICASONE PROPIONATE\SALMETEROL XINAFOATE
     Indication: ASTHMA
     Dosage: 4 DF, QD
     Route: 055
  27. VALPROIC ACID. [Interacting]
     Active Substance: VALPROIC ACID
     Indication: MANIA
     Dosage: 4500 MG, QD (1500 MG, 3X PER DAY)
  28. VALPROIC ACID. [Interacting]
     Active Substance: VALPROIC ACID
     Dosage: 500 MG, Q8H
  29. LORATADINE. [Interacting]
     Active Substance: LORATADINE
     Indication: RHINITIS ALLERGIC
     Dosage: 10 MG, QD, PER DAY
     Route: 048
  30. HALOPERIDOL. [Interacting]
     Active Substance: HALOPERIDOL
     Indication: NERVOUS SYSTEM DISORDER
     Dosage: 45 MG, QD (10-20 MG)
  31. SALMETEROL/FLUTICASONE CASCAN [Interacting]
     Active Substance: FLUTICASONE PROPIONATE\SALMETEROL XINAFOATE
     Dosage: 4 DOSAGE FORM, QD
     Route: 055
  32. TIOTROPIUM [Suspect]
     Active Substance: TIOTROPIUM
     Dosage: 5 ?G, QD (2 PUFFS)
     Route: 065
  33. LEVOTHYROXINE. [Concomitant]
     Active Substance: LEVOTHYROXINE
     Dosage: 450 ?G, QD (100- 200 MG)
  34. QUETIAPINE. [Interacting]
     Active Substance: QUETIAPINE
     Indication: DEPRESSION
     Dosage: 400 MG, Q8H
     Route: 065
  35. CLONAZEPAM. [Interacting]
     Active Substance: CLONAZEPAM
     Dosage: 8 MG, QD, PER DAY
  36. SALMETEROL/FLUTICASONE CASCAN [Concomitant]
     Active Substance: FLUTICASONE PROPIONATE\SALMETEROL XINAFOATE
     Dosage: 1 DF, UNK (1-0-1-0.2 INHALACIONES)
     Route: 048
  37. METFORMIN [Concomitant]
     Active Substance: METFORMIN HYDROCHLORIDE
     Indication: TYPE 2 DIABETES MELLITUS
     Dosage: 850 MG, BID, 850 MG, BID (0-1-1-0) CHRONIC
     Route: 048
  38. VALPROIC ACID. [Interacting]
     Active Substance: VALPROIC ACID
     Dosage: 1500 MG, TID (1-1-1-0)
  39. QUETIAPINE. [Interacting]
     Active Substance: QUETIAPINE
     Dosage: 400 MG, TID (1-1-1-0) CHRONIC
     Route: 065
  40. METFORMIN [Interacting]
     Active Substance: METFORMIN HYDROCHLORIDE
     Dosage: 850 MG, BID (0-1-1-0) CHRONIC
     Route: 048
  41. HALOPERIDOL. [Interacting]
     Active Substance: HALOPERIDOL
     Dosage: 15 MG, QD
     Route: 065
  42. SALMETEROL/FLUTICASONE CASCAN [Interacting]
     Active Substance: FLUTICASONE PROPIONATE\SALMETEROL XINAFOATE
     Indication: ASTHMA
     Dosage: 1 DF, BID
     Route: 048

REACTIONS (11)
  - Prescribed overdose [Fatal]
  - Ventricular fibrillation [Fatal]
  - Off label use [Fatal]
  - Cardiac failure [Fatal]
  - Hyperprolactinaemia [Unknown]
  - Drug interaction [Fatal]
  - Pruritus [Unknown]
  - Coma [Not Recovered/Not Resolved]
  - Hypothyroidism [Unknown]
  - Loss of consciousness [Not Recovered/Not Resolved]
  - Type 2 diabetes mellitus [Unknown]
